FAERS Safety Report 6037889-9 (Version None)
Quarter: 2009Q1

REPORT INFORMATION
  Report Type: 
  Country: None (occurrence: None)
  Receive Date: 20090115
  Receipt Date: 20090107
  Transmission Date: 20090719
  Serious: Yes (Other)
  Sender: FDA-Public Use
  Company Number: IE-BRISTOL-MYERS SQUIBB COMPANY-14469951

PATIENT
  Sex: Male

DRUGS (4)
  1. ERBITUX [Suspect]
     Indication: COLORECTAL CANCER
     Route: 041
  2. ERBITUX [Suspect]
     Indication: METASTASES TO THE MEDIASTINUM
     Route: 041
  3. RADIATION THERAPY [Suspect]
     Indication: COLORECTAL CANCER
  4. RADIATION THERAPY [Suspect]
     Indication: METASTASES TO THE MEDIASTINUM

REACTIONS (1)
  - RADIATION PNEUMONITIS [None]
